FAERS Safety Report 10330284 (Version 2)
Quarter: 2014Q3

REPORT INFORMATION
  Report Type: Spontaneous
  Country: US (occurrence: US)
  Receive Date: 20140722
  Receipt Date: 20140801
  Transmission Date: 20150326
  Serious: No
  Sender: FDA-Public Use
  Company Number: US-009507513-1407USA007582

PATIENT
  Age: 44 Year
  Sex: Male
  Weight: 82.99 kg

DRUGS (1)
  1. LIPTRUZET [Suspect]
     Active Substance: ATORVASTATIN CALCIUM\EZETIMIBE
     Indication: BLOOD CHOLESTEROL ABNORMAL
     Dosage: UNK
     Route: 048
     Dates: start: 20130628, end: 201405

REACTIONS (1)
  - Anorgasmia [Recovered/Resolved]

NARRATIVE: CASE EVENT DATE: 20130712
